FAERS Safety Report 4887774-0 (Version None)
Quarter: 2006Q1

REPORT INFORMATION
  Report Type: 
  Country: None (occurrence: None)
  Receive Date: 20060123
  Receipt Date: 20051013
  Transmission Date: 20060701
  Serious: Yes (Hospitalization)
  Sender: FDA-Public Use
  Company Number: US-ROCHE-421763

PATIENT
  Sex: Male
  Weight: 6 kg

DRUGS (2)
  1. ACCUTANE [Suspect]
     Dates: start: 19900925
  2. ACCUTANE [Suspect]
     Dates: start: 19871221, end: 19880615

REACTIONS (7)
  - ASHERMAN'S SYNDROME [None]
  - DRUG EXPOSURE DURING PREGNANCY [None]
  - HIGH RISK PREGNANCY [None]
  - JAUNDICE [None]
  - JAUNDICE NEONATAL [None]
  - PREMATURE SEPARATION OF PLACENTA [None]
  - UMBILICAL CORD AROUND NECK [None]
